FAERS Safety Report 12700078 (Version 1)
Quarter: 2016Q3

REPORT INFORMATION
  Report Type: Spontaneous
  Country: US (occurrence: US)
  Receive Date: 20160830
  Receipt Date: 20160830
  Transmission Date: 20161109
  Serious: Yes (Other)
  Sender: FDA-Public Use
  Company Number: US-PFIZER INC-2016405479

PATIENT
  Age: 69 Year
  Sex: Female

DRUGS (1)
  1. LYRICA [Suspect]
     Active Substance: PREGABALIN
     Indication: ARTHRITIS
     Dosage: ONLY TWO PILLS

REACTIONS (11)
  - Pain [Unknown]
  - Arthropathy [Unknown]
  - Product use issue [Unknown]
  - Homicidal ideation [Unknown]
  - Irritability [Unknown]
  - Condition aggravated [Unknown]
  - Gait disturbance [Unknown]
  - Bone density decreased [Unknown]
  - Weight increased [Unknown]
  - Suicidal ideation [Unknown]
  - Anger [Recovered/Resolved]
